FAERS Safety Report 19963572 (Version 1)
Quarter: 2021Q4

REPORT INFORMATION
  Report Type: Spontaneous
  Country: US (occurrence: US)
  Receive Date: 20211014
  Receipt Date: 20211014
  Transmission Date: 20220303
  Serious: Yes (Death)
  Sender: FDA-Public Use
  Company Number: None

PATIENT
  Sex: Female
  Weight: 28.4 kg

DRUGS (5)
  1. DAUNORUBICIN [Suspect]
     Active Substance: DAUNORUBICIN
     Dates: end: 20210903
  2. DEXAMETHASONE [Suspect]
     Active Substance: DEXAMETHASONE
     Dates: end: 20210907
  3. CYTARABINE [Suspect]
     Active Substance: CYTARABINE
     Dates: end: 20210907
  4. METHOTREXATE [Suspect]
     Active Substance: METHOTREXATE
     Dates: end: 20210903
  5. VINCRISTINE SULFATE [Suspect]
     Active Substance: VINCRISTINE SULFATE
     Dates: end: 20210917

REACTIONS (10)
  - Encephalopathy [None]
  - Intestinal dilatation [None]
  - Hepatomegaly [None]
  - Fungal infection [None]
  - Respiratory failure [None]
  - Pulmonary oedema [None]
  - Cardiomegaly [None]
  - Renal injury [None]
  - Multiple organ dysfunction syndrome [None]
  - Septic shock [None]
